FAERS Safety Report 5904507-7 (Version None)
Quarter: 2008Q4

REPORT INFORMATION
  Report Type: 
  Country: None (occurrence: None)
  Receive Date: 20081001
  Receipt Date: 20080926
  Transmission Date: 20090506
  Serious: Yes (Hospitalization, Other)
  Sender: FDA-Public Use
  Company Number: US-ELI_LILLY_AND_COMPANY-US200809006132

PATIENT
  Sex: Female

DRUGS (3)
  1. HUMULIN N [Suspect]
     Dosage: UNK, UNK
     Dates: start: 19930101
  2. HUMULIN R [Suspect]
     Dosage: UNK, UNK
     Dates: start: 19930101
  3. ISOSORBIDE MONONITRATE [Concomitant]

REACTIONS (12)
  - ARTERIOSCLEROSIS [None]
  - BLOOD GLUCOSE INCREASED [None]
  - DEHYDRATION [None]
  - DIABETIC COMA [None]
  - HYPERPHAGIA [None]
  - HYPERSOMNIA [None]
  - HYPERTENSION [None]
  - INCOHERENT [None]
  - LOSS OF CONSCIOUSNESS [None]
  - NASOPHARYNGITIS [None]
  - SWELLING [None]
  - VOMITING [None]
